FAERS Safety Report 7091175-7 (Version None)
Quarter: 2010Q4

REPORT INFORMATION
  Report Type: 
  Country: None (occurrence: None)
  Receive Date: 20101105
  Receipt Date: 20101105
  Transmission Date: 20110411
  Serious: Yes (Other)
  Sender: FDA-Public Use
  Company Number: None

PATIENT
  Age: 49 Year
  Sex: Male
  Weight: 136.0791 kg

DRUGS (2)
  1. OXYCONTIN [Suspect]
     Indication: BACK INJURY
     Dosage: 80MG TWO A DAY PO
     Route: 048
     Dates: start: 20100926, end: 20101104
  2. OXYCONTIN [Suspect]
     Dosage: 40 MG ONE A DAY PO
     Route: 048

REACTIONS (5)
  - ABDOMINAL DISTENSION [None]
  - DRUG INEFFECTIVE [None]
  - FLATULENCE [None]
  - HEADACHE [None]
  - PRODUCT FORMULATION ISSUE [None]
